FAERS Safety Report 20908845 (Version 1)
Quarter: 2022Q2

REPORT INFORMATION
  Report Type: Spontaneous
  Country: RU (occurrence: None)
  Receive Date: 20220603
  Receipt Date: 20220603
  Transmission Date: 20220720
  Serious: Yes (Other)
  Sender: FDA-Public Use
  Company Number: RU-ROCHE-3104668

PATIENT
  Sex: Male
  Weight: 69 kg

DRUGS (2)
  1. VEMURAFENIB [Suspect]
     Active Substance: VEMURAFENIB
     Indication: Product used for unknown indication
     Route: 048
     Dates: start: 20211103
  2. COBIMETINIB [Suspect]
     Active Substance: COBIMETINIB
     Indication: Product used for unknown indication
     Route: 048
     Dates: start: 20211103

REACTIONS (9)
  - Pulmonary mass [Unknown]
  - Hepatic cyst [Unknown]
  - Neoplasm progression [Unknown]
  - Toxic skin eruption [Unknown]
  - Hypertension [Unknown]
  - Bone cyst [Unknown]
  - Asthenia [Unknown]
  - Pain [Unknown]
  - Erythema [Unknown]
